FAERS Safety Report 8901692 (Version 1)
Quarter: 2012Q4

REPORT INFORMATION
  Report Type: Spontaneous
  Country: TW (occurrence: None)
  Receive Date: 20121101
  Receipt Date: 20121101
  Transmission Date: 20130627
  Serious: Yes (Other)
  Sender: FDA-Public Use
  Company Number: DKLU1085475

PATIENT
  Age: 13 Year
  Sex: Male

DRUGS (1)
  1. SABRIL [Suspect]
     Indication: EPILEPSY
     Route: 048
     Dates: start: 200709

REACTIONS (3)
  - Blindness [None]
  - Optic neuritis [None]
  - Visual field defect [None]
